FAERS Safety Report 10174266 (Version 3)
Quarter: 2014Q4

REPORT INFORMATION
  Report Type: Spontaneous
  Country: US (occurrence: US)
  Receive Date: 20140515
  Receipt Date: 20141203
  Transmission Date: 20150528
  Serious: Yes (Other)
  Sender: FDA-Public Use
  Company Number: US-BAYER-2014-069938

PATIENT
  Age: 25 Year
  Sex: Female
  Weight: 108.84 kg

DRUGS (1)
  1. MIRENA [Suspect]
     Active Substance: LEVONORGESTREL
     Indication: CONTRACEPTION
     Dosage: 20 MCG/24HR, CONT
     Route: 015
     Dates: start: 20110328, end: 20140507

REACTIONS (9)
  - Procedural pain [Recovered/Resolved]
  - Device breakage [None]
  - Uterine perforation [Recovered/Resolved]
  - Device difficult to use [Recovered/Resolved]
  - Pelvic discomfort [None]
  - Device difficult to use [None]
  - Back pain [None]
  - Complication of device removal [None]
  - Abdominal pain [Recovered/Resolved]

NARRATIVE: CASE EVENT DATE: 2011
